FAERS Safety Report 7757763-7 (Version None)
Quarter: 2011Q3

REPORT INFORMATION
  Report Type: 
  Country: None (occurrence: None)
  Receive Date: 20110918
  Receipt Date: 20110907
  Transmission Date: 20111222
  Serious: Yes (Hospitalization)
  Sender: FDA-Public Use
  Company Number: US-ASTRAZENECA-2011SE53691

PATIENT
  Age: 20 Year
  Sex: Male

DRUGS (4)
  1. QUETIAPINE [Suspect]
     Route: 048
     Dates: start: 20090209, end: 20090817
  2. LORAZEPAM [Concomitant]
     Indication: ANXIETY
     Dates: start: 20081215
  3. ZOLPIDEM [Concomitant]
     Indication: INSOMNIA
     Dates: start: 20081215
  4. QUETIAPINE [Suspect]
     Indication: SCHIZOPHRENIA
     Route: 048
     Dates: start: 20090202, end: 20090208

REACTIONS (1)
  - PSYCHOTIC DISORDER [None]
